FAERS Safety Report 5724423-3 (Version None)
Quarter: 2008Q2

REPORT INFORMATION
  Report Type: 
  Country: None (occurrence: None)
  Receive Date: 20080430
  Receipt Date: 20080418
  Transmission Date: 20081010
  Serious: Yes (Other)
  Sender: FDA-Public Use
  Company Number: US-PFIZER INC-2008036547

PATIENT
  Age: 60 Year
  Sex: Female
  Weight: 55.909 kg

DRUGS (7)
  1. CHANTIX [Suspect]
     Indication: SMOKING CESSATION THERAPY
  2. FOSAMAX [Concomitant]
  3. VYTORIN [Concomitant]
  4. TRICOR [Concomitant]
  5. CALCIUM [Concomitant]
  6. VITAMIN CAP [Concomitant]
  7. DYAZIDE [Concomitant]

REACTIONS (6)
  - ACTIVITIES OF DAILY LIVING IMPAIRED [None]
  - DYSPEPSIA [None]
  - FLATULENCE [None]
  - INSOMNIA [None]
  - NAUSEA [None]
  - ORAL INTAKE REDUCED [None]
